FAERS Safety Report 21975918 (Version 1)
Quarter: 2023Q1

REPORT INFORMATION
  Report Type: Spontaneous
  Country: US (occurrence: None)
  Receive Date: 20230210
  Receipt Date: 20230210
  Transmission Date: 20230418
  Serious: Yes (Other)
  Sender: FDA-Public Use
  Company Number: US-ROCHE-3278230

PATIENT
  Sex: Female

DRUGS (2)
  1. ACTEMRA [Suspect]
     Active Substance: TOCILIZUMAB
     Indication: Product used for unknown indication
     Route: 058
  2. HUMIRA [Suspect]
     Active Substance: ADALIMUMAB
     Indication: Product used for unknown indication
     Dosage: SINGLE DOSE PEN
     Route: 058
     Dates: start: 20180101, end: 20221010

REACTIONS (4)
  - Injection site pain [Unknown]
  - Alopecia [Unknown]
  - Pneumonia [Unknown]
  - Rash [Unknown]
